FAERS Safety Report 16806687 (Version 2)
Quarter: 2019Q3

REPORT INFORMATION
  Report Type: Report from Study
  Country: PT (occurrence: PT)
  Receive Date: 20190913
  Receipt Date: 20190913
  Transmission Date: 20191005
  Serious: Yes (Death, Hospitalization, Other)
  Sender: FDA-Public Use
  Company Number: PT-REGENERON PHARMACEUTICALS, INC.-2019-52403

PATIENT

DRUGS (19)
  1. ISATUXIMAB [Suspect]
     Active Substance: ISATUXIMAB
     Dosage: 10 MG/KG, QW
     Route: 042
     Dates: start: 20190813, end: 20190813
  2. CLEMASTINA                         /00137201/ [Concomitant]
     Indication: PROPHYLAXIS
     Dosage: 2 MG, 1X
     Route: 042
     Dates: start: 20190813, end: 20190813
  3. PARACETAMOL [Concomitant]
     Active Substance: ACETAMINOPHEN
     Dosage: 1 G, 1X
     Route: 042
     Dates: start: 20190819, end: 20190819
  4. PANTOPRAZOL                        /01263201/ [Concomitant]
     Active Substance: PANTOPRAZOLE
     Indication: PROPHYLAXIS
     Dosage: 40 MG, 1X
     Route: 042
     Dates: start: 20190813, end: 20190813
  5. PANTOPRAZOL                        /01263201/ [Concomitant]
     Active Substance: PANTOPRAZOLE
     Dosage: 40 MG, 1X
     Route: 042
     Dates: start: 20190819, end: 20190819
  6. PANTOPRAZOL                        /01263201/ [Concomitant]
     Active Substance: PANTOPRAZOLE
     Dosage: 40 MG, 1X
     Route: 042
     Dates: start: 20190902, end: 20190902
  7. CLEMASTINA                         /00137201/ [Concomitant]
     Dosage: 2 MG, 1X
     Route: 042
     Dates: start: 20190902, end: 20190902
  8. METILPREDNISOLONA                  /00049601/ [Concomitant]
     Active Substance: METHYLPREDNISOLONE
     Dosage: 125 MG, 1X
     Route: 042
     Dates: start: 20190819, end: 20190819
  9. ISATUXIMAB [Suspect]
     Active Substance: ISATUXIMAB
     Indication: LYMPHOMA
     Dosage: 10 MG/KG, QW
     Route: 042
     Dates: start: 20190902, end: 20190902
  10. CLEMASTINA                         /00137201/ [Concomitant]
     Dosage: 2 MG, 1X
     Route: 042
     Dates: start: 20190826, end: 20190826
  11. METILPREDNISOLONA                  /00049601/ [Concomitant]
     Active Substance: METHYLPREDNISOLONE
     Indication: PROPHYLAXIS
     Dosage: 125 MG, 1X
     Route: 042
     Dates: start: 20190813, end: 20190813
  12. PARACETAMOL [Concomitant]
     Active Substance: ACETAMINOPHEN
     Dosage: 1 G, 1X
     Route: 042
     Dates: start: 20190902, end: 20190902
  13. CLEMASTINA                         /00137201/ [Concomitant]
     Dosage: 2 MG, 1X
     Route: 042
     Dates: start: 20190819, end: 20190819
  14. CEMIPLIMAB [Suspect]
     Active Substance: CEMIPLIMAB
     Indication: LYMPHOMA
     Dosage: 250 MG, QOW
     Route: 042
     Dates: start: 20190812, end: 20190812
  15. METILPREDNISOLONA                  /00049601/ [Concomitant]
     Active Substance: METHYLPREDNISOLONE
     Dosage: 125 MG, 1X
     Route: 042
     Dates: start: 20190826, end: 20190826
  16. PANTOPRAZOL                        /01263201/ [Concomitant]
     Active Substance: PANTOPRAZOLE
     Dosage: 40 MG, 1X
     Route: 042
     Dates: start: 20190826, end: 20190826
  17. PARACETAMOL [Concomitant]
     Active Substance: ACETAMINOPHEN
     Indication: PROPHYLAXIS
     Dosage: 1 G, 1X
     Route: 042
     Dates: start: 20190813, end: 20190813
  18. PARACETAMOL [Concomitant]
     Active Substance: ACETAMINOPHEN
     Dosage: 1 G, 1X
     Route: 042
     Dates: start: 20190826, end: 20190826
  19. METILPREDNISOLONA                  /00049601/ [Concomitant]
     Active Substance: METHYLPREDNISOLONE
     Dosage: 125 MG, 1X
     Route: 042
     Dates: start: 20190902, end: 20190902

REACTIONS (2)
  - Septic shock [Fatal]
  - Haematemesis [Not Recovered/Not Resolved]

NARRATIVE: CASE EVENT DATE: 20190825
